FAERS Safety Report 8024558-9 (Version None)
Quarter: 2012Q1

REPORT INFORMATION
  Report Type: 
  Country: None (occurrence: None)
  Receive Date: 20120103
  Receipt Date: 20111220
  Transmission Date: 20120608
  Serious: Yes (Hospitalization, Other)
  Sender: FDA-Public Use
  Company Number: AUR-APL-2011-06315

PATIENT
  Age: 61 Year
  Sex: Male

DRUGS (7)
  1. MELOXICAM [Suspect]
     Indication: ANALGESIC THERAPY
     Dosage: (15 MG, 1 D), ORAL
     Route: 048
     Dates: start: 20110113
  2. TORADOL [Suspect]
     Indication: ANALGESIC THERAPY
     Dosage: (30 MG, 1 D), INTRAVENOUS
     Route: 042
     Dates: start: 20110112, end: 20110112
  3. ALLOPURINOL [Concomitant]
  4. CEFUROXIME [Concomitant]
  5. OXYCONTIN [Concomitant]
  6. ACETAMINOPHEN [Concomitant]
  7. PRADAXA [Suspect]
     Indication: THROMBOSIS PROPHYLAXIS
     Dosage: (110 MG, 1 D), ORAL, (220 MG, 1 D), UNKNOWN
     Route: 048
     Dates: start: 20110112, end: 20110113

REACTIONS (1)
  - POST PROCEDURAL HAEMORRHAGE [None]
